FAERS Safety Report 17109031 (Version 1)
Quarter: 2019Q4

REPORT INFORMATION
  Report Type: Spontaneous
  Country: GB (occurrence: GB)
  Receive Date: 20191204
  Receipt Date: 20191204
  Transmission Date: 20200122
  Serious: Yes (Other)
  Sender: FDA-Public Use
  Company Number: GB-TEVA-2019-GB-1145749

PATIENT
  Age: 60 Year
  Sex: Female
  Weight: 78.01 kg

DRUGS (1)
  1. AMLODIPINE BESILATE [Suspect]
     Active Substance: AMLODIPINE BESYLATE
     Indication: HYPERTENSION
     Dosage: 10 MG
     Route: 048
     Dates: start: 20190912, end: 20191028

REACTIONS (3)
  - Depression [Recovering/Resolving]
  - Crying [Unknown]
  - Irritability [Unknown]

NARRATIVE: CASE EVENT DATE: 20191010
